FAERS Safety Report 9801873 (Version 3)
Quarter: 2014Q1

REPORT INFORMATION
  Report Type: Report from Study
  Country: GB (occurrence: GB)
  Receive Date: 20140107
  Receipt Date: 20140123
  Transmission Date: 20141002
  Serious: Yes (Other)
  Sender: FDA-Public Use
  Company Number: GB-CELGENEUS-167-VELCA-13115182

PATIENT
  Age: 47 Year
  Sex: Female
  Weight: 61.7 kg

DRUGS (13)
  1. VELCADE [Suspect]
     Indication: PLASMA CELL MYELOMA
     Dosage: 2.1 MILLIGRAM
     Route: 041
     Dates: start: 20111031, end: 20111120
  2. VELCADE [Suspect]
     Dosage: 1.7 MILLIGRAM
     Route: 041
     Dates: start: 20111212, end: 20120501
  3. CYCLOPHOSPHAMIDE [Suspect]
     Indication: PLASMA CELL MYELOMA
     Route: 048
     Dates: start: 20111031, end: 20120501
  4. CYCLOPHOSPHAMIDE [Suspect]
     Route: 065
     Dates: start: 200703, end: 200705
  5. CYCLOPHOSPHAMIDE [Suspect]
     Route: 065
     Dates: start: 200708, end: 200708
  6. DEXAMETHASONE [Suspect]
     Indication: PLASMA CELL MYELOMA
     Route: 048
     Dates: start: 20111031, end: 20120102
  7. DEXAMETHASONE [Suspect]
     Route: 065
     Dates: start: 200705, end: 200705
  8. DEXAMETHASONE [Suspect]
     Route: 065
     Dates: start: 200610, end: 200702
  9. DEXAMETHASONE [Suspect]
     Route: 048
     Dates: start: 20120113, end: 20120120
  10. DEXAMETHASONE [Suspect]
     Route: 048
     Dates: start: 20120302, end: 20120501
  11. THALIDOMIDE [Suspect]
     Indication: PLASMA CELL MYELOMA
     Route: 048
     Dates: start: 200703, end: 200705
  12. FLOXIN [Concomitant]
     Indication: INFECTION
     Route: 065
     Dates: start: 20120125, end: 20120202
  13. FLUCOXACILLIN [Concomitant]
     Indication: INFECTION
     Route: 065
     Dates: start: 20120125, end: 20120202

REACTIONS (1)
  - Renal cell carcinoma [Recovered/Resolved]
